FAERS Safety Report 5568754-9 (Version None)
Quarter: 2007Q4

REPORT INFORMATION
  Report Type: 
  Country: None (occurrence: None)
  Receive Date: 20071220
  Receipt Date: 20061215
  Transmission Date: 20080405
  Serious: No
  Sender: FDA-Public Use
  Company Number: A0631730A

PATIENT
  Age: 79 Year
  Sex: Male

DRUGS (1)
  1. AVODART [Suspect]
     Indication: BENIGN PROSTATIC HYPERPLASIA
     Dosage: .5MG PER DAY
     Route: 048
     Dates: start: 20061122

REACTIONS (3)
  - BURNING SENSATION [None]
  - POLLAKIURIA [None]
  - URINE ODOUR ABNORMAL [None]
